FAERS Safety Report 19100167 (Version 1)
Quarter: 2021Q2

REPORT INFORMATION
  Report Type: Spontaneous
  Country: GB (occurrence: GB)
  Receive Date: 20210407
  Receipt Date: 20210407
  Transmission Date: 20210717
  Serious: Yes (Hospitalization, Other)
  Sender: FDA-Public Use
  Company Number: GB-B.I. PHARMACEUTICALS,INC./RIDGEFIELD-2021-BI-094479

PATIENT
  Age: 60 Year
  Sex: Male
  Weight: 94.9 kg

DRUGS (10)
  1. LISINOPRIL. [Concomitant]
     Active Substance: LISINOPRIL
     Indication: ILL-DEFINED DISORDER
  2. ONDANSETRON [Concomitant]
     Active Substance: ONDANSETRON
     Indication: ILL-DEFINED DISORDER
  3. PREGABALIN. [Concomitant]
     Active Substance: PREGABALIN
     Indication: ILL-DEFINED DISORDER
  4. SULBUTAMOL [Concomitant]
     Indication: ILL-DEFINED DISORDER
  5. JARDIANCE [Suspect]
     Active Substance: EMPAGLIFLOZIN
     Indication: TYPE 2 DIABETES MELLITUS
     Dosage: 25MG DAILY
     Route: 048
  6. FENOFIBRATE. [Concomitant]
     Active Substance: FENOFIBRATE
     Indication: ILL-DEFINED DISORDER
  7. METFORMIN [Concomitant]
     Active Substance: METFORMIN HYDROCHLORIDE
     Indication: ILL-DEFINED DISORDER
  8. INSULIN [Concomitant]
     Active Substance: INSULIN NOS
     Indication: ILL-DEFINED DISORDER
  9. PARACETAMOL [Concomitant]
     Active Substance: ACETAMINOPHEN
     Indication: ILL-DEFINED DISORDER
  10. BENDROFLUMETHIAZIDE [Concomitant]
     Active Substance: BENDROFLUMETHIAZIDE
     Indication: ILL-DEFINED DISORDER

REACTIONS (7)
  - Diarrhoea [Unknown]
  - Vomiting [Unknown]
  - Diabetic ketoacidosis [Recovering/Resolving]
  - Pancreatitis acute [Unknown]
  - Abdominal pain [Unknown]
  - Abdominal pain [Unknown]
  - Pollakiuria [Unknown]

NARRATIVE: CASE EVENT DATE: 20210325
